FAERS Safety Report 15427997 (Version 1)
Quarter: 2018Q3

REPORT INFORMATION
  Report Type: Report from Study
  Country: US (occurrence: US)
  Receive Date: 20180926
  Receipt Date: 20180926
  Transmission Date: 20181010
  Serious: No
  Sender: FDA-Public Use
  Company Number: US-IPSEN BIOPHARMACEUTICALS, INC.-2018-14395

PATIENT
  Sex: Female
  Weight: 55 kg

DRUGS (19)
  1. DYSPORT [Suspect]
     Active Substance: ABOBOTULINUMTOXINA
     Indication: DYSTONIA
     Dosage: STRENGTH: 200 UNITS, TOTAL DOSE: 200 (UNITS UNSPECIFIED)
  2. VITAMIN B COMPLEX [Concomitant]
     Active Substance: CYANOCOBALAMIN\DEXPANTHENOL\NIACINAMIDE\PYRIDOXINE HYDROCHLORIDE\RIBOFLAVIN 5^-PHOSPHATE SODIUM\THIAMINE HYDROCHLORIDE\VITAMIN B COMPLEX
     Dosage: 24?OCT?2017 (ENTERED)
     Route: 048
  3. BIOTIN [Concomitant]
     Active Substance: BIOTIN
     Dosage: 01?DEC?2017 (ENTERED)
  4. INFLUENZA [Concomitant]
     Active Substance: INFLUENZA VIRUS VACCINE
     Dosage: RIGHT DELTOID
     Route: 030
     Dates: start: 20170310, end: 20170310
  5. ALLEGRA [Concomitant]
     Active Substance: FEXOFENADINE HYDROCHLORIDE
     Dosage: REFILLS: 12, QUANTITY: 30 TABLET. 25?MAY?2017 (ENTERED)
     Route: 048
  6. VITAMIN B12 [Concomitant]
     Active Substance: CYANOCOBALAMIN
     Dosage: 14?NOV?2017 (ENTERED)
  7. TAMOXIFEN [Concomitant]
     Active Substance: TAMOXIFEN
     Dosage: 11?MAY?2018 (PRESCRIBED)
     Route: 048
  8. HERCEPTIN [Concomitant]
     Active Substance: TRASTUZUMAB
  9. BUPROPION HYDROCHLORIDE XL [Concomitant]
     Active Substance: BUPROPION HYDROCHLORIDE
     Dosage: 1 TABLET EVERY DAY, 04?MAY?2018 (PRESCRIBED)
     Route: 048
  10. CLONIDINE HCL [Concomitant]
     Active Substance: CLONIDINE HYDROCHLORIDE
     Dosage: 02?FEB?2018 (PRESCRIBED).
     Route: 048
  11. COENZYME Q10 [Concomitant]
     Active Substance: UBIDECARENONE
     Dosage: 03?OCT?2017 (ENTERED)
     Route: 048
  12. GABAPENTIN. [Concomitant]
     Active Substance: GABAPENTIN
     Dosage: 06?JUL?2018 (PRESCRIBED).
     Route: 048
  13. NABUMETONE. [Concomitant]
     Active Substance: NABUMETONE
     Dosage: 01?AUG?2017 (ENTERED)
     Route: 048
  14. VALIUM [Concomitant]
     Active Substance: DIAZEPAM
     Dosage: 02?FEB?2018 (PRESCRIBED)
     Route: 048
  15. ZANTAC [Concomitant]
     Active Substance: RANITIDINE HYDROCHLORIDE
     Dosage: REFILLS: 3, QUANTITY: 90 TABLET, 30?MAR?2015 (FILLED)
     Route: 048
  16. DYSPORT [Suspect]
     Active Substance: ABOBOTULINUMTOXINA
     Indication: OFF LABEL USE
  17. PROTONIX [Concomitant]
     Active Substance: PANTOPRAZOLE SODIUM
     Dosage: REFILLS: 5, QUANTITY: 30 ENTERIC COATED TABLET, 06?DEC?2016 (ENTERED)
     Route: 048
  18. DYSPORT [Suspect]
     Active Substance: ABOBOTULINUMTOXINA
     Indication: MUSCLE SPASMS
     Dosage: STRENGTH: 200 UNITS, DOSE: ADDITIONAL 20?30 UNITS, CONTINUE 12 WEEKS
  19. ALPHA LIPOIC ACID [Concomitant]
     Active Substance: .ALPHA.-LIPOIC ACID
     Dosage: 24?OCT?2017 (ENTERED)
     Route: 048

REACTIONS (4)
  - Nerve block [Unknown]
  - Dysphagia [Unknown]
  - Off label use [Unknown]
  - Muscular weakness [Unknown]
